FAERS Safety Report 6823560-X (Version None)
Quarter: 2010Q3

REPORT INFORMATION
  Report Type: 
  Country: None (occurrence: None)
  Receive Date: 20100708
  Receipt Date: 20100630
  Transmission Date: 20110219
  Serious: Yes (Hospitalization, Other)
  Sender: FDA-Public Use
  Company Number: US-BAXTER-2010BH017497

PATIENT
  Sex: Male

DRUGS (1)
  1. CIPROFLOXACIN IN DEXTROSE 5% [Suspect]
     Indication: COLITIS
     Route: 042
     Dates: start: 20090201

REACTIONS (9)
  - PRURITUS [None]
  - RASH [None]
  - SKIN DISCOLOURATION [None]
  - SKIN EXFOLIATION [None]
  - SKIN LESION [None]
  - SKIN SWELLING [None]
  - STEVENS-JOHNSON SYNDROME [None]
  - THERMAL BURN [None]
  - TOXIC EPIDERMAL NECROLYSIS [None]
